FAERS Safety Report 18608173 (Version 3)
Quarter: 2021Q2

REPORT INFORMATION
  Report Type: Other
  Country: US (occurrence: US)
  Receive Date: 20201212
  Receipt Date: 20210517
  Transmission Date: 20210717
  Serious: Yes (Other)
  Sender: FDA-Public Use
  Company Number: US-ROCHE-2726781

PATIENT
  Sex: Female

DRUGS (3)
  1. METOPROLOL. [Concomitant]
     Active Substance: METOPROLOL
  2. ESBRIET [Suspect]
     Active Substance: PIRFENIDONE
     Indication: PULMONARY FIBROSIS
     Dosage: 1 TID FOR 2 WEEKS THEN 2 TID FOR 2 WEEKS THEN 3 TID
     Route: 048
  3. ESBRIET [Suspect]
     Active Substance: PIRFENIDONE
     Dosage: TAKE 3 TABLETS BY MOUTH 3 TIMES A DAY
     Route: 048

REACTIONS (7)
  - Atrial fibrillation [Unknown]
  - Sensory disturbance [Unknown]
  - Hepatic enzyme increased [Unknown]
  - Fatigue [Unknown]
  - Liver function test abnormal [Unknown]
  - Alopecia [Unknown]
  - Dry mouth [Unknown]
